FAERS Safety Report 8496487-8 (Version None)
Quarter: 2012Q2

REPORT INFORMATION
  Report Type: 
  Country: None (occurrence: None)
  Receive Date: 20120629
  Receipt Date: 20120614
  Transmission Date: 20120825
  Serious: Yes (Hospitalization)
  Sender: FDA-Public Use
  Company Number: GB-DEXPHARM-20120731

PATIENT
  Age: 37 Year
  Sex: Male

DRUGS (7)
  1. OMEPRAZOLE [Suspect]
     Indication: ABDOMINAL DISCOMFORT
     Dosage: 20 MG MILLIGRAM(S) 1 IN 1 DAY
     Route: 048
     Dates: start: 20110427
  2. OMEPRAZOLE [Suspect]
     Indication: ABDOMINAL DISCOMFORT
     Dosage: 20 MG MILLIGRAM(S) 1 IN 1 DAY
     Route: 048
     Dates: start: 20110603, end: 20111001
  3. DOXYCYCLINE [Concomitant]
  4. TRIMETHOPRIM [Concomitant]
  5. QUETIAPINE [Concomitant]
  6. AMOXICILLIN [Concomitant]
  7. LAXIDO [Concomitant]

REACTIONS (15)
  - ANAEMIA [None]
  - HAIR COLOUR CHANGES [None]
  - NAUSEA [None]
  - ABDOMINAL DISCOMFORT [None]
  - VOMITING [None]
  - DRY SKIN [None]
  - PYREXIA [None]
  - HYPERCHLORHYDRIA [None]
  - TEMPERATURE REGULATION DISORDER [None]
  - JAUNDICE [None]
  - PHOTOSENSITIVITY REACTION [None]
  - DENTAL CARIES [None]
  - ARTHRALGIA [None]
  - ANXIETY [None]
  - GASTROOESOPHAGEAL REFLUX DISEASE [None]
